FAERS Safety Report 4903751-5 (Version None)
Quarter: 2006Q1

REPORT INFORMATION
  Report Type: 
  Country: None (occurrence: None)
  Receive Date: 20060203
  Receipt Date: 20060125
  Transmission Date: 20060701
  Serious: Yes (Hospitalization)
  Sender: FDA-Public Use
  Company Number: 200610328BWH

PATIENT
  Age: 81 Year
  Sex: Female
  Weight: 62 kg

DRUGS (12)
  1. NEXAVAR [Suspect]
     Indication: NON-SMALL CELL LUNG CANCER
     Dosage: 400 MG , BID; 400 MG ONCE ORAL
     Route: 048
     Dates: start: 20060111, end: 20060113
  2. NEXAVAR [Suspect]
     Indication: NON-SMALL CELL LUNG CANCER
     Dosage: 400 MG , BID; 400 MG ONCE ORAL
     Route: 048
     Dates: start: 20060114
  3. ZOMETA [Concomitant]
  4. ALEVE [Concomitant]
  5. CELEBREX [Concomitant]
  6. EPOETIN ALFA [Concomitant]
  7. IRON [Concomitant]
  8. RESTORIL [Concomitant]
  9. XANAX [Concomitant]
  10. CHEMOTHERAPY MULTIPLE AGENTS SYSTEMIC [Concomitant]
  11. CHEMOTHERAPY SINGLE AGENT SYSTEMIC [Concomitant]
  12. TARCEVA [Concomitant]

REACTIONS (10)
  - BACK PAIN [None]
  - BALINT'S SYNDROME [None]
  - BONE PAIN [None]
  - CAROTID ARTERY STENOSIS [None]
  - CEREBELLAR INFARCTION [None]
  - CEREBRAL ISCHAEMIA [None]
  - EMBOLIC STROKE [None]
  - FALL [None]
  - ISCHAEMIC CEREBRAL INFARCTION [None]
  - PAIN [None]
